FAERS Safety Report 14125324 (Version 1)
Quarter: 2017Q4

REPORT INFORMATION
  Report Type: Spontaneous
  Country: US (occurrence: US)
  Receive Date: 20171025
  Receipt Date: 20171025
  Transmission Date: 20180321
  Serious: Yes (Hospitalization)
  Sender: FDA-Public Use
  Company Number: US-PFIZER INC-2017456379

PATIENT
  Age: 10 Month
  Sex: Female

DRUGS (1)
  1. KETAMINE HCL [Suspect]
     Active Substance: KETAMINE HYDROCHLORIDE
     Dosage: UNK
     Route: 048

REACTIONS (4)
  - Brain oedema [Recovered/Resolved with Sequelae]
  - Unresponsive to stimuli [Recovered/Resolved]
  - Hydrocephalus [Recovered/Resolved with Sequelae]
  - Accidental exposure to product by child [Recovered/Resolved with Sequelae]
